FAERS Safety Report 12696318 (Version 5)
Quarter: 2021Q4

REPORT INFORMATION
  Report Type: Spontaneous
  Country: NP (occurrence: NP)
  Receive Date: 20160830
  Receipt Date: 20211126
  Transmission Date: 20220303
  Serious: Yes (Hospitalization, Other)
  Sender: FDA-Public Use
  Company Number: NP-CIPLA LTD.-2016NP17824

PATIENT

DRUGS (1)
  1. AMLODIPINE [Suspect]
     Active Substance: AMLODIPINE BESYLATE
     Dosage: 5 MG (45 TABS), AT ONCE (CUMULATIVE DOSE 220 MG)
     Route: 048

REACTIONS (6)
  - Overdose [Recovered/Resolved]
  - Hypotension [Recovered/Resolved]
  - Non-cardiogenic pulmonary oedema [Recovered/Resolved]
  - Respiratory alkalosis [Recovered/Resolved]
  - Myocardial depression [Recovered/Resolved]
  - Swelling face [Recovered/Resolved]
